FAERS Safety Report 16121662 (Version 1)
Quarter: 2019Q1

REPORT INFORMATION
  Report Type: Spontaneous
  Country: BE (occurrence: BE)
  Receive Date: 20190327
  Receipt Date: 20190327
  Transmission Date: 20190418
  Serious: Yes (Life-Threatening, Hospitalization)
  Sender: FDA-Public Use
  Company Number: BE-ACCORD-115820

PATIENT
  Age: 92 Year
  Sex: Male
  Weight: 60 kg

DRUGS (7)
  1. OXYBUTYNIN. [Concomitant]
     Active Substance: OXYBUTYNIN CHLORIDE
     Route: 048
     Dates: start: 20151001, end: 20181031
  2. DONEPEZIL/DONEPEZIL HYDROCHLORIDE [Suspect]
     Active Substance: DONEPEZIL HYDROCHLORIDE
     Indication: PRODUCT USED FOR UNKNOWN INDICATION
     Dosage: TAKEN IN THE EVENING
     Route: 048
     Dates: start: 20181101, end: 20181105
  3. VESICARE [Interacting]
     Active Substance: SOLIFENACIN SUCCINATE
     Indication: PRODUCT USED FOR UNKNOWN INDICATION
     Dosage: THE MORNING
     Route: 048
     Dates: start: 20181001, end: 20181031
  4. CORUNO [Concomitant]
     Active Substance: MOLSIDOMINE
     Route: 048
     Dates: start: 20150101
  5. ALLOPURINOL. [Concomitant]
     Active Substance: ALLOPURINOL
     Route: 048
     Dates: start: 201709
  6. ASAFLOW [Concomitant]
     Active Substance: ASPIRIN
     Route: 048
     Dates: start: 2009
  7. NEBIVOLOL. [Concomitant]
     Active Substance: NEBIVOLOL
     Dates: start: 20181104

REACTIONS (5)
  - Epilepsy [Recovered/Resolved]
  - Confusional state [Recovered/Resolved]
  - Paralysis [Recovered/Resolved]
  - Drug interaction [Unknown]
  - Cardio-respiratory arrest [Recovered/Resolved]

NARRATIVE: CASE EVENT DATE: 20181104
